FAERS Safety Report 6940684-7 (Version None)
Quarter: 2010Q3

REPORT INFORMATION
  Report Type: 
  Country: None (occurrence: None)
  Receive Date: 20100825
  Receipt Date: 20100817
  Transmission Date: 20110219
  Serious: Yes (Other)
  Sender: FDA-Public Use
  Company Number: US-ROCHE-713185

PATIENT
  Sex: Female
  Weight: 45.4 kg

DRUGS (5)
  1. BONIVA [Suspect]
     Indication: OSTEOPOROSIS
     Route: 048
     Dates: start: 20080825, end: 20100629
  2. SYNTHROID [Concomitant]
     Indication: HYPOTHYROIDISM
  3. SPIRIVA [Concomitant]
     Indication: ASTHMA
  4. QUESTRAN [Concomitant]
  5. ASPIRIN [Concomitant]

REACTIONS (1)
  - FEMORAL NECK FRACTURE [None]
